FAERS Safety Report 10303883 (Version 1)
Quarter: 2014Q3

REPORT INFORMATION
  Report Type: Spontaneous
  Country: US (occurrence: US)
  Receive Date: 20140714
  Receipt Date: 20140714
  Transmission Date: 20150326
  Serious: No
  Sender: FDA-Public Use
  Company Number: US-GILEAD-2013-0085784

PATIENT
  Sex: Female

DRUGS (2)
  1. REVATIO [Concomitant]
     Active Substance: SILDENAFIL CITRATE
     Indication: PRODUCT USED FOR UNKNOWN INDICATION
  2. LETAIRIS [Suspect]
     Active Substance: AMBRISENTAN
     Indication: PRODUCT USED FOR UNKNOWN INDICATION
     Dosage: 5 MG, QD
     Dates: start: 20111219

REACTIONS (9)
  - Chills [Unknown]
  - Dyspnoea [Unknown]
  - Cough [Unknown]
  - Increased upper airway secretion [Unknown]
  - Oedema [Unknown]
  - Fatigue [Unknown]
  - Nasal congestion [Unknown]
  - Dizziness [Unknown]
  - Chest pain [Unknown]
